FAERS Safety Report 17359207 (Version 1)
Quarter: 2020Q1

REPORT INFORMATION
  Report Type: Spontaneous
  Country: FR (occurrence: FR)
  Receive Date: 20200203
  Receipt Date: 20200203
  Transmission Date: 20200409
  Serious: Yes (Hospitalization, Other)
  Sender: FDA-Public Use
  Company Number: FR-BRISTOL-MYERS SQUIBB COMPANY-BMS-2020-007113

PATIENT
  Age: 54 Year
  Sex: Male
  Weight: 88 kg

DRUGS (3)
  1. UROREC [Concomitant]
     Active Substance: SILODOSIN
     Indication: PRODUCT USED FOR UNKNOWN INDICATION
     Dosage: UNK
     Route: 065
  2. KARDEGIC [Concomitant]
     Active Substance: ASPIRIN DL-LYSINE
     Indication: PRODUCT USED FOR UNKNOWN INDICATION
     Dosage: UNK
     Route: 048
  3. OPDIVO [Suspect]
     Active Substance: NIVOLUMAB
     Indication: SQUAMOUS CELL CARCINOMA
     Dosage: 240 MILLIGRAM PER TWO WEEKS
     Route: 041
     Dates: start: 20190412, end: 20191025

REACTIONS (4)
  - Lymphadenopathy mediastinal [Not Recovered/Not Resolved]
  - Hepatocellular injury [Recovered/Resolved]
  - Antinuclear antibody [Not Recovered/Not Resolved]
  - Hepatitis E virus test positive [Recovering/Resolving]

NARRATIVE: CASE EVENT DATE: 20191030
